FAERS Safety Report 10665052 (Version 1)
Quarter: 2014Q4

REPORT INFORMATION
  Report Type: Spontaneous
  Country: CA (occurrence: CA)
  Receive Date: 20141219
  Receipt Date: 20141219
  Transmission Date: 20150529
  Serious: Yes (Other)
  Sender: FDA-Public Use
  Company Number: CA-TEVA-529404USA

PATIENT
  Age: 33 Year
  Sex: Female

DRUGS (2)
  1. PREVACID [Concomitant]
     Active Substance: LANSOPRAZOLE
  2. SEASONIQUE [Suspect]
     Active Substance: ETHINYL ESTRADIOL\LEVONORGESTREL
     Indication: CONTRACEPTION
     Dates: start: 2013

REACTIONS (3)
  - Crohn^s disease [Unknown]
  - Gastrointestinal disorder [Unknown]
  - Colitis [Unknown]

NARRATIVE: CASE EVENT DATE: 201404
